FAERS Safety Report 5523544-8 (Version None)
Quarter: 2007Q4

REPORT INFORMATION
  Report Type: 
  Country: None (occurrence: None)
  Receive Date: 20071119
  Receipt Date: 20071119
  Transmission Date: 20080405
  Serious: Yes (Hospitalization)
  Sender: FDA-Public Use
  Company Number: None

PATIENT
  Age: 55 Year
  Sex: Male
  Weight: 74.8435 kg

DRUGS (1)
  1. ZETIA [Suspect]
     Indication: BLOOD CHOLESTEROL
     Dosage: ONE PILL ONCE A DAY PO
     Route: 048
     Dates: start: 20060910, end: 20070920

REACTIONS (3)
  - IMPAIRED WORK ABILITY [None]
  - INTESTINAL OBSTRUCTION [None]
  - PAIN [None]
